FAERS Safety Report 8479897-4 (Version None)
Quarter: 2012Q2

REPORT INFORMATION
  Report Type: 
  Country: None (occurrence: None)
  Receive Date: 20120629
  Receipt Date: 20120619
  Transmission Date: 20120825
  Serious: Yes (Hospitalization)
  Sender: FDA-Public Use
  Company Number: JP-VERTEX PHARMACEUTICALS INC.-AE-2012-006551

PATIENT
  Age: 70 Year
  Sex: Female

DRUGS (11)
  1. ALLOPURINOL [Concomitant]
     Route: 048
     Dates: start: 20120317
  2. PEGINTERFERON ALFA-2B [Concomitant]
     Indication: HEPATITIS C
     Route: 058
     Dates: start: 20120314
  3. SELBEX [Concomitant]
     Route: 048
  4. JUZEN-TAIHO-TO [Concomitant]
     Route: 048
  5. DEPAS [Concomitant]
     Route: 048
  6. LENDEM [Concomitant]
     Route: 048
  7. RIBAVIRIN [Concomitant]
     Indication: HEPATITIS C
     Route: 048
     Dates: start: 20120314, end: 20120404
  8. URSO 250 [Concomitant]
     Route: 048
     Dates: start: 20110811
  9. RIBAVIRIN [Concomitant]
     Route: 048
     Dates: start: 20120405
  10. TELAVIC (TELAPREVIR) [Suspect]
     Indication: HEPATITIS C
     Route: 048
     Dates: start: 20120314
  11. NORVASC [Concomitant]
     Route: 048

REACTIONS (3)
  - NAUSEA [None]
  - MATERNAL EXPOSURE DURING PREGNANCY [None]
  - DECREASED APPETITE [None]
